FAERS Safety Report 4939832-X (Version None)
Quarter: 2006Q1

REPORT INFORMATION
  Report Type: 
  Country: None (occurrence: None)
  Receive Date: 20060307
  Receipt Date: 20060223
  Transmission Date: 20060701
  Serious: Yes (Hospitalization)
  Sender: FDA-Public Use
  Company Number: 2006026056

PATIENT
  Sex: Male

DRUGS (7)
  1. AMLODIPINE [Suspect]
     Indication: HYPERTENSION
     Dosage: 10 MG (10 MG, DAILY INTERVAL: DAILY), ORAL
     Route: 048
  2. MOXONIDINE (MOXONIDINE) [Concomitant]
  3. METOPROLOL (METOPROLOL) [Concomitant]
  4. FUROSEMIDE [Concomitant]
  5. KALIUM CHLORATUM SPOFA (POTASSIUM CHLORIDE) [Concomitant]
  6. TRIBENOSIDE (TRIBENOSIDE) [Concomitant]
  7. CLONAZEPAM [Concomitant]

REACTIONS (5)
  - BILATERAL ORCHIDECTOMY [None]
  - CONDITION AGGRAVATED [None]
  - HYPERTENSION [None]
  - NEPHRECTOMY [None]
  - PROSTATE CANCER [None]
